FAERS Safety Report 16796674 (Version 1)
Quarter: 2019Q3

REPORT INFORMATION
  Report Type: Spontaneous
  Country: FR (occurrence: FR)
  Receive Date: 20190911
  Receipt Date: 20190911
  Transmission Date: 20191005
  Serious: Yes (Life-Threatening, Hospitalization, Other)
  Sender: FDA-Public Use
  Company Number: FR-PFM-2019-10933

PATIENT

DRUGS (3)
  1. PROPRANOLOL [Suspect]
     Active Substance: PROPRANOLOL HYDROCHLORIDE
     Indication: POISONING DELIBERATE
     Dosage: 4000MG IN TOTAL
     Route: 048
     Dates: start: 20190212, end: 20190212
  2. QUETIAPINE. [Suspect]
     Active Substance: QUETIAPINE
     Indication: POISONING DELIBERATE
     Dosage: 1000MG IN TOTAL
     Route: 048
     Dates: start: 20190212, end: 20190212
  3. ESCITALOPRAM [Suspect]
     Active Substance: ESCITALOPRAM OXALATE
     Indication: POISONING DELIBERATE
     Dosage: 10MG IN TOTAL
     Route: 048
     Dates: start: 20190212, end: 20190212

REACTIONS (8)
  - Product use issue [Unknown]
  - Sinus bradycardia [Recovered/Resolved]
  - Off label use [Unknown]
  - Bundle branch block [Recovered/Resolved]
  - Hypotension [Recovered/Resolved]
  - Generalised tonic-clonic seizure [Recovered/Resolved]
  - Somnolence [Recovered/Resolved]
  - Poisoning deliberate [Unknown]

NARRATIVE: CASE EVENT DATE: 20190212
